FAERS Safety Report 11152034 (Version 1)
Quarter: 2015Q2

REPORT INFORMATION
  Report Type: Spontaneous
  Country: US (occurrence: None)
  Receive Date: 20150529
  Receipt Date: 20150529
  Transmission Date: 20150821
  Serious: Yes (Death)
  Sender: FDA-Public Use
  Company Number: None

PATIENT
  Age: 94 Year
  Sex: Male

DRUGS (13)
  1. NITROSTAT [Concomitant]
     Active Substance: NITROGLYCERIN
  2. PROBIOTIC [Concomitant]
     Active Substance: PROBIOTICS NOS
  3. METMUCIL [Concomitant]
  4. SPIRONOLACTONE. [Concomitant]
     Active Substance: SPIRONOLACTONE
  5. TRMADOL WITH ACETAMINOPHEN [Concomitant]
     Active Substance: ACETAMINOPHEN\TRAMADOL
  6. MVI [Concomitant]
     Active Substance: VITAMINS
  7. SENOKOT [Concomitant]
     Active Substance: SENNOSIDES
  8. XARELTO [Suspect]
     Active Substance: RIVAROXABAN
     Indication: ATRIAL FIBRILLATION
     Route: 048
  9. FUROSEMIDE. [Concomitant]
     Active Substance: FUROSEMIDE
  10. ACETAMINOPHEN. [Concomitant]
     Active Substance: ACETAMINOPHEN
  11. LORAZEPAM. [Concomitant]
     Active Substance: LORAZEPAM
  12. MIRTAZEPINE [Concomitant]
  13. DOCUSATE [Concomitant]
     Active Substance: DOCUSATE

REACTIONS (5)
  - Condition aggravated [None]
  - General physical health deterioration [None]
  - Asthenia [None]
  - Fall [None]
  - Subdural haematoma [None]

NARRATIVE: CASE EVENT DATE: 20150404
